FAERS Safety Report 26139761 (Version 1)
Quarter: 2025Q4

REPORT INFORMATION
  Report Type: Spontaneous
  Country: US (occurrence: None)
  Receive Date: 20251209
  Receipt Date: 20251209
  Transmission Date: 20260117
  Serious: Yes (Other)
  Sender: FDA-CTU
  Company Number: None

PATIENT
  Sex: Female
  Weight: 53.98 kg

DRUGS (1)
  1. LUMASON [Suspect]
     Active Substance: SULFUR HEXAFLUORIDE

REACTIONS (6)
  - Contrast media reaction [None]
  - Abdominal pain [None]
  - Dyspnoea [None]
  - Flushing [None]
  - Blood pressure decreased [None]
  - Dizziness [None]

NARRATIVE: CASE EVENT DATE: 20251208
